FAERS Safety Report 8407598-7 (Version None)
Quarter: 2012Q2

REPORT INFORMATION
  Report Type: 
  Country: None (occurrence: None)
  Receive Date: 20120604
  Receipt Date: 20120525
  Transmission Date: 20120825
  Serious: Yes (Hospitalization)
  Sender: FDA-Public Use
  Company Number: US-US-EMD SERONO, INC.-7133432

PATIENT
  Sex: Female
  Weight: 109 kg

DRUGS (2)
  1. REBIF [Suspect]
     Route: 058
     Dates: start: 20120517
  2. REBIF [Suspect]
     Indication: MULTIPLE SCLEROSIS
     Route: 058
     Dates: start: 20120420

REACTIONS (4)
  - INJECTION SITE ERYTHEMA [None]
  - DIABETES MELLITUS [None]
  - BACK PAIN [None]
  - MULTIPLE SCLEROSIS RELAPSE [None]
